FAERS Safety Report 9246728 (Version 1)
Quarter: 2013Q2

REPORT INFORMATION
  Report Type: Spontaneous
  Country: FI (occurrence: FI)
  Receive Date: 20130422
  Receipt Date: 20130422
  Transmission Date: 20140414
  Serious: Yes (Hospitalization)
  Sender: FDA-Public Use
  Company Number: FI-ELI_LILLY_AND_COMPANY-FI201304003818

PATIENT
  Sex: Female

DRUGS (17)
  1. FORSTEO [Suspect]
     Indication: OSTEOPOROSIS
     Dosage: 20MCG, OD
     Dates: start: 20121205
  2. CARDACE [Concomitant]
     Indication: BLOOD PRESSURE
     Dosage: 5MG, 1X2
  3. ZANIDIP [Concomitant]
     Indication: BLOOD PRESSURE
     Dosage: 10MG, 1X1
  4. ZANIDIP [Concomitant]
     Dosage: 10MG, 1X1
  5. FLORINEF [Concomitant]
     Indication: HYPOTHALAMO-PITUITARY DISORDER
     Dosage: UNK, QD
  6. PREDNISOLON [Concomitant]
     Dosage: 7.5MG, 1X1
  7. HYDROCORTISONE [Concomitant]
     Dosage: 10MG, X1
  8. THYROXIN [Concomitant]
     Indication: HYPOTHYROIDISM
     Dosage: 0.5MG, 1X1
  9. SOMAC [Concomitant]
     Indication: GASTRIC DISORDER
     Dosage: UNK, UNK
  10. SPIRESIS [Concomitant]
     Indication: DIURETIC THERAPY
     Dosage: UNK, 1X1
  11. FURESIS [Concomitant]
     Indication: DIURETIC THERAPY
     Dosage: UNK, 2X1
  12. SYMBICORT [Concomitant]
     Indication: ASTHMA
  13. VENTOLIN                                /SCH/ [Concomitant]
  14. PANADOL [Concomitant]
     Indication: PAIN
  15. INNOHEP [Concomitant]
     Indication: COAGULOPATHY
  16. CALCIUM [Concomitant]
     Indication: MEDICAL DIET
  17. VITAMIN B [Concomitant]

REACTIONS (1)
  - Pulmonary fibrosis [Not Recovered/Not Resolved]
